FAERS Safety Report 9379733 (Version 2)
Quarter: 2013Q3

REPORT INFORMATION
  Report Type: Spontaneous
  Country: US (occurrence: US)
  Receive Date: 20130702
  Receipt Date: 20130726
  Transmission Date: 20140515
  Serious: Yes (Hospitalization)
  Sender: FDA-Public Use
  Company Number: US-BAYER-2013-080658

PATIENT
  Age: 25 Year
  Sex: Female
  Weight: 69.84 kg

DRUGS (3)
  1. YASMIN [Suspect]
  2. YAZ [Suspect]
  3. CYTOMEL [Concomitant]
     Dosage: 25 ?G, OD
     Route: 048

REACTIONS (3)
  - Jugular vein thrombosis [None]
  - Injury [None]
  - Emotional distress [None]
